FAERS Safety Report 15330129 (Version 1)
Quarter: 2018Q3

REPORT INFORMATION
  Report Type: Spontaneous
  Country: US (occurrence: US)
  Receive Date: 20180824
  Receipt Date: 20180824
  Transmission Date: 20181010
  Serious: Yes (Life-Threatening, Disabling)
  Sender: FDA-Public Use
  Company Number: None

PATIENT
  Age: 14 Year
  Sex: Female
  Weight: 78.02 kg

DRUGS (2)
  1. NEXPLANON [Suspect]
     Active Substance: ETONOGESTREL
  2. ADHD MEDS [Concomitant]

REACTIONS (4)
  - Wound complication [None]
  - Skin implant removal [None]
  - Vasculitis necrotising [None]
  - Impaired healing [None]

NARRATIVE: CASE EVENT DATE: 20160101
